FAERS Safety Report 26168864 (Version 1)
Quarter: 2025Q4

REPORT INFORMATION
  Report Type: Spontaneous
  Country: US (occurrence: US)
  Receive Date: 20251217
  Receipt Date: 20251217
  Transmission Date: 20260118
  Serious: No
  Sender: PACIRA
  Company Number: US-ORG100016242-2025000336

PATIENT
  Age: 73 Year
  Sex: Female

DRUGS (4)
  1. EXPAREL [Suspect]
     Active Substance: BUPIVACAINE
     Indication: Nerve block
     Dosage: 10 CC NERVE BLOCK AND 10?CC INTRAARTICULAR
     Route: 014
     Dates: start: 20250819, end: 20250819
  2. BUPIVACAINE [Suspect]
     Active Substance: BUPIVACAINE
     Indication: Nerve block
     Dosage: 20 CC
     Route: 014
     Dates: start: 20250819, end: 20250819
  3. PROPOFOL [Concomitant]
     Active Substance: PROPOFOL
     Indication: Induction of anaesthesia
     Dosage: LOW DOSE
     Route: 065
     Dates: start: 20250819, end: 20250819
  4. Lactate Ringer^s [Concomitant]
     Indication: Product used for unknown indication
     Dosage: 2L
     Route: 065
     Dates: start: 20250819, end: 20250819

REACTIONS (3)
  - Off label use [Unknown]
  - Procedural haemorrhage [Unknown]
  - Post procedural hypotension [Unknown]

NARRATIVE: CASE EVENT DATE: 20250819
